FAERS Safety Report 6556783-8 (Version None)
Quarter: 2010Q1

REPORT INFORMATION
  Report Type: 
  Country: None (occurrence: None)
  Receive Date: 20100125
  Receipt Date: 20100108
  Transmission Date: 20100710
  Serious: Yes (Death)
  Sender: FDA-Public Use
  Company Number: 2523595-2010-00002

PATIENT
  Age: 5 Year
  Sex: Female
  Weight: 34 kg

DRUGS (1)
  1. UVADEX [Suspect]
     Indication: GRAFT VERSUS HOST DISEASE
     Dosage: PER ECP TREATMENT
     Dates: start: 20091202

REACTIONS (2)
  - DISEASE RECURRENCE [None]
  - HISTIOCYTOSIS HAEMATOPHAGIC [None]
